FAERS Safety Report 24616751 (Version 1)
Quarter: 2024Q4

REPORT INFORMATION
  Report Type: Spontaneous
  Country: US (occurrence: US)
  Receive Date: 20241114
  Receipt Date: 20241114
  Transmission Date: 20250114
  Serious: No
  Sender: OTSUKA
  Company Number: US-OTSUKA-2024_000868

PATIENT
  Age: 59 Year
  Sex: Male
  Weight: 121.11 kg

DRUGS (1)
  1. NUEDEXTA [Suspect]
     Active Substance: DEXTROMETHORPHAN HYDROBROMIDE\QUINIDINE SULFATE
     Indication: Affect lability
     Dosage: (20-10 MG)
     Route: 065

REACTIONS (3)
  - Disease recurrence [Unknown]
  - Product dose omission issue [Unknown]
  - Intentional product use issue [Unknown]

NARRATIVE: CASE EVENT DATE: 20240108
